FAERS Safety Report 12544852 (Version 8)
Quarter: 2017Q2

REPORT INFORMATION
  Report Type: Spontaneous
  Country: GB (occurrence: GB)
  Receive Date: 20160711
  Receipt Date: 20170407
  Transmission Date: 20170830
  Serious: Yes (Other)
  Sender: FDA-Public Use
  Company Number: GB-PFIZER INC-2016331518

PATIENT
  Age: 56 Year
  Sex: Male

DRUGS (4)
  1. METHOTREXATE SODIUM. [Suspect]
     Active Substance: METHOTREXATE SODIUM
     Dosage: UNK
  2. SIMPONI [Suspect]
     Active Substance: GOLIMUMAB
     Dosage: UNK
     Route: 058
     Dates: start: 20170217
  3. SIMPONI [Suspect]
     Active Substance: GOLIMUMAB
     Dosage: UNK
     Route: 058
  4. SIMPONI [Suspect]
     Active Substance: GOLIMUMAB
     Dosage: UNK
     Route: 058
     Dates: start: 20160417

REACTIONS (14)
  - Injection site vesicles [Unknown]
  - Rubber sensitivity [Unknown]
  - Fungal infection [Unknown]
  - Intervertebral disc disorder [Unknown]
  - Injection site reaction [Unknown]
  - Lethargy [Unknown]
  - Urinary tract infection [Unknown]
  - Hypertension [Unknown]
  - Fatigue [Unknown]
  - Oral candidiasis [Not Recovered/Not Resolved]
  - Pain [Unknown]
  - Headache [Unknown]
  - Asthenia [Unknown]
  - Lower respiratory tract infection [Not Recovered/Not Resolved]

NARRATIVE: CASE EVENT DATE: 2016
